FAERS Safety Report 18209164 (Version 1)
Quarter: 2020Q3

REPORT INFORMATION
  Report Type: Spontaneous
  Country: CN (occurrence: CN)
  Receive Date: 20200828
  Receipt Date: 20200828
  Transmission Date: 20201103
  Serious: Yes (Hospitalization)
  Sender: FDA-Public Use
  Company Number: CN-SA-2020SA143517

PATIENT

DRUGS (7)
  1. CALCIUM HYDROGEN PHOSPHATE [Concomitant]
     Active Substance: CALCIUM PHOSPHATE, DIBASIC, ANHYDROUS
     Dosage: 2 DF, TID
     Dates: start: 20170920
  2. LYSINE HYDROCHLORIDE AND ZINC GLUCONATE [Concomitant]
     Dosage: 1 BAG PER TIME, 3 TIMES A DAY (EACH BAG CONTAINED 125 MG OF LYSINE HYDROCHLORIDE AND 35 MG OF ZINC G
     Dates: start: 20170920
  3. THALIDOMIDE [Concomitant]
     Active Substance: THALIDOMIDE
     Indication: ORAL LICHEN PLANUS
     Dosage: 50 MG, QD
     Route: 048
     Dates: start: 20170920
  4. VITAMIN D2 [Concomitant]
     Active Substance: ERGOCALCIFEROL
     Dosage: UNK UNK, TID
     Route: 065
  5. POTASSIUM CHLORIDE. [Concomitant]
     Active Substance: POTASSIUM CHLORIDE
     Dosage: 1 G, BID
     Dates: start: 20170920
  6. TRIAMCINOLONE ACETONIDE. [Suspect]
     Active Substance: TRIAMCINOLONE ACETONIDE
     Indication: ORAL LICHEN PLANUS
     Dosage: SUBMUCOSALLY INJECTED INTO THE LESION AREA ON THE BACK OF THE TONGUE
     Dates: start: 20170920, end: 201709
  7. CALCIUM GLUCONATE. [Concomitant]
     Active Substance: CALCIUM GLUCONATE
     Dosage: 2 DF, TID
     Dates: start: 20170920

REACTIONS (6)
  - Injection site pain [Recovered/Resolved]
  - Type IV hypersensitivity reaction [Recovered/Resolved]
  - Injection site haemorrhage [Recovered/Resolved]
  - Tongue disorder [Recovered/Resolved]
  - Oral pain [Recovered/Resolved]
  - Tongue haemorrhage [Recovered/Resolved]

NARRATIVE: CASE EVENT DATE: 20170920
